FAERS Safety Report 13628018 (Version 2)
Quarter: 2017Q2

REPORT INFORMATION
  Report Type: Spontaneous
  Country: CN (occurrence: CN)
  Receive Date: 20170607
  Receipt Date: 20170614
  Transmission Date: 20170830
  Serious: Yes (Death)
  Sender: FDA-Public Use
  Company Number: CN-JNJFOC-20170602889

PATIENT
  Age: 72 Year
  Sex: Male

DRUGS (2)
  1. TRAMADOL HYDROCHLORIDE. [Suspect]
     Active Substance: TRAMADOL HYDROCHLORIDE
     Indication: PAIN
     Dosage: FOR 5 DAYS
     Route: 065
  2. DUROGESIC D-TRANS [Suspect]
     Active Substance: FENTANYL
     Indication: PAIN
     Dosage: AT 13:00-14:00
     Route: 062
     Dates: start: 20170531, end: 20170531

REACTIONS (6)
  - Discoloured vomit [Unknown]
  - Dyspnoea [Unknown]
  - Heart rate increased [Unknown]
  - Death [Fatal]
  - Pyrexia [Unknown]
  - Somnolence [Unknown]

NARRATIVE: CASE EVENT DATE: 20170531
